FAERS Safety Report 4416939-7 (Version None)
Quarter: 2004Q3

REPORT INFORMATION
  Report Type: 
  Country: None (occurrence: None)
  Receive Date: 20040806
  Receipt Date: 20040728
  Transmission Date: 20050211
  Serious: Yes (Hospitalization)
  Sender: FDA-Public Use
  Company Number: US-BRISTOL-MYERS SQUIBB COMPANY-12652707

PATIENT
  Age: 58 Year
  Sex: Female

DRUGS (16)
  1. CARBOPLATIN [Suspect]
     Indication: OVARIAN CANCER
     Dosage: CYCLE 1: 19-FEB-2003
     Route: 042
     Dates: start: 20030312, end: 20030312
  2. PACLITAXEL [Suspect]
     Indication: OVARIAN CANCER
     Dosage: CYCLE 1: 19-FEB-2003
     Route: 042
     Dates: start: 20030312, end: 20030312
  3. INTERFERON GAMMA [Suspect]
     Indication: OVARIAN CANCER
     Route: 058
     Dates: start: 20030219
  4. COMPAZINE [Concomitant]
     Dates: start: 20030218
  5. ATIVAN [Concomitant]
     Dates: start: 20030218
  6. KYTRIL [Concomitant]
     Dates: start: 20030219
  7. DECADRON [Concomitant]
     Indication: PREMEDICATION
     Dates: start: 20030219
  8. BENADRYL [Concomitant]
     Indication: PREMEDICATION
     Dates: start: 20030219
  9. CIPRO [Concomitant]
     Dates: start: 20030219, end: 20030223
  10. MAXZIDE [Concomitant]
     Dates: start: 20021201, end: 20030223
  11. HUMULIN 70/30 [Concomitant]
     Dates: start: 20000101
  12. SYNTHROID [Concomitant]
     Dates: start: 20000101
  13. ELAVIL [Concomitant]
     Dates: start: 19940101
  14. ACTOS [Concomitant]
     Dates: start: 20021201
  15. COZAAR [Concomitant]
     Dates: start: 20021201
  16. ALTACE [Concomitant]
     Dates: start: 20000101

REACTIONS (1)
  - ORTHOSTATIC HYPOTENSION [None]
